FAERS Safety Report 6026246-7 (Version None)
Quarter: 2008Q4

REPORT INFORMATION
  Report Type: 
  Country: None (occurrence: None)
  Receive Date: 20081230
  Receipt Date: 20081218
  Transmission Date: 20090506
  Serious: Yes (Other)
  Sender: FDA-Public Use
  Company Number: 08P-229-0493825-00

PATIENT
  Sex: Female

DRUGS (1)
  1. SYNAGIS [Suspect]
     Indication: DRUG USE FOR UNKNOWN INDICATION
     Dosage: (15 MG/KG) INJECTION
     Route: 042
     Dates: start: 20081013

REACTIONS (1)
  - BRONCHIOLITIS [None]
